FAERS Safety Report 8062956-8 (Version None)
Quarter: 2012Q1

REPORT INFORMATION
  Report Type: 
  Country: None (occurrence: None)
  Receive Date: 20120123
  Receipt Date: 20120123
  Transmission Date: 20120608
  Serious: Yes (Hospitalization)
  Sender: FDA-Public Use
  Company Number: None

PATIENT
  Age: 1 Year
  Sex: Male
  Weight: 11.339 kg

DRUGS (2)
  1. ACETAMINOPHEN [Suspect]
     Indication: IRRITABILITY
     Dosage: 5 ML
     Route: 048
     Dates: start: 20111018, end: 20111018
  2. ACETAMINOPHEN [Suspect]
     Indication: PAIN
     Dosage: 5 ML
     Route: 048
     Dates: start: 20111018, end: 20111018

REACTIONS (5)
  - PRODUCT TASTE ABNORMAL [None]
  - PRODUCT TAMPERING [None]
  - PRODUCT CONTAMINATION [None]
  - CHOKING [None]
  - DRUG ERUPTION [None]
